FAERS Safety Report 12697853 (Version 1)
Quarter: 2016Q3

REPORT INFORMATION
  Report Type: Spontaneous
  Country: US (occurrence: None)
  Receive Date: 20160829
  Receipt Date: 20160829
  Transmission Date: 20161109
  Serious: Yes (Hospitalization)
  Sender: FDA-Public Use
  Company Number: None

PATIENT
  Age: 60 Year
  Sex: Female
  Weight: 135.35 kg

DRUGS (7)
  1. DOXORUBICIN, 20MG/10ML PFIZER [Suspect]
     Active Substance: DOXORUBICIN
     Indication: BREAST CANCER
     Route: 040
     Dates: start: 20160826, end: 20160826
  2. DEXAMETHASONE. [Concomitant]
     Active Substance: DEXAMETHASONE
  3. EMEND [Concomitant]
     Active Substance: APREPITANT
  4. DOXORUBICIN, 50MG/25ML FRESNIUS KABI [Suspect]
     Active Substance: DOXORUBICIN
     Indication: BREAST CANCER
     Route: 040
     Dates: start: 20160826, end: 20160826
  5. PACLITAXEL. [Concomitant]
     Active Substance: PACLITAXEL
  6. ALOXI [Concomitant]
     Active Substance: PALONOSETRON HYDROCHLORIDE
  7. ABRAXANE [Concomitant]
     Active Substance: PACLITAXEL

REACTIONS (4)
  - Therapy non-responder [None]
  - Tremor [None]
  - Chills [None]
  - Infusion related reaction [None]

NARRATIVE: CASE EVENT DATE: 20160826
